FAERS Safety Report 10932585 (Version 1)
Quarter: 2015Q1

REPORT INFORMATION
  Report Type: Spontaneous
  Country: US (occurrence: None)
  Receive Date: 20150319
  Receipt Date: 20150319
  Transmission Date: 20150721
  Serious: Yes (Other)
  Sender: FDA-Public Use
  Company Number: None

PATIENT
  Age: 46 Year
  Sex: Female
  Weight: 56.7 kg

DRUGS (1)
  1. LATISSE [Suspect]
     Active Substance: BIMATOPROST
     Dosage: 1 TIME PER DAY, AT BED TIME, APPLIED TO A SURFACE, USUALLY THE SKIN
     Dates: start: 20140801, end: 20140930

REACTIONS (2)
  - Ocular hyperaemia [None]
  - Iris disorder [None]

NARRATIVE: CASE EVENT DATE: 20150310
